FAERS Safety Report 5440533-2 (Version None)
Quarter: 2007Q3

REPORT INFORMATION
  Report Type: 
  Country: None (occurrence: None)
  Receive Date: 20070731
  Receipt Date: 20070604
  Transmission Date: 20080115
  Serious: No
  Sender: FDA-Public Use
  Company Number: US200706001941

PATIENT
  Age: 67 Year
  Sex: Female
  Weight: 89.8 kg

DRUGS (15)
  1. BYETTA [Suspect]
     Indication: TYPE 2 DIABETES MELLITUS
     Dosage: 5 UG, 2/D, SUBCUTANEOUS
     Route: 058
     Dates: start: 20070526
  2. EXENATIDE 5MCG PEN, DISPOSABLE DEVICE (EXENATIDE PEN (5MCG)) PEN,DISPO [Concomitant]
  3. GLIPIZIDE [Concomitant]
  4. METOPROLOL TARTRATE [Concomitant]
  5. CARDIZEM CD [Concomitant]
  6. LEVOTHYROXINE SODIUM [Concomitant]
  7. ZOCOR [Concomitant]
  8. ASPIRIN [Concomitant]
  9. LASIX [Concomitant]
  10. TRAMADOL HCL [Concomitant]
  11. BACLOFEN [Concomitant]
  12. ASCORBIC ACID [Concomitant]
  13. GLUCOSAMINE W/CHONDROITIN (CHONDROITIN SULFATE, GLUCOSAMINE) [Concomitant]
  14. ZINC (ZINC) [Concomitant]
  15. VITAMIN B COMPLEX (CALCIUM PANTOTHENATE, NICOTINAMIDE, PYRIDOXINE HYDR [Concomitant]

REACTIONS (3)
  - ERUCTATION [None]
  - URINE OUTPUT DECREASED [None]
  - VOMITING [None]
